FAERS Safety Report 11741359 (Version 2)
Quarter: 2015Q4

REPORT INFORMATION
  Report Type: Spontaneous
  Country: JP (occurrence: JP)
  Receive Date: 20151116
  Receipt Date: 20151127
  Transmission Date: 20160304
  Serious: Yes (Hospitalization, Other)
  Sender: FDA-Public Use
  Company Number: JP-ROCHE-1659711

PATIENT
  Age: 36 Year
  Sex: Female

DRUGS (12)
  1. PLAVIX [Concomitant]
     Active Substance: CLOPIDOGREL BISULFATE
     Route: 065
  2. POLARAMINE [Concomitant]
     Active Substance: DEXCHLORPHENIRAMINE MALEATE
     Route: 065
  3. WARFARIN [Concomitant]
     Active Substance: WARFARIN
     Dosage: DOSAGE IS UNCERTAIN.
     Route: 065
  4. XYZAL [Concomitant]
     Active Substance: LEVOCETIRIZINE DIHYDROCHLORIDE
     Route: 065
  5. RIVOTRIL [Concomitant]
     Active Substance: CLONAZEPAM
     Dosage: DOSAGE IS UNCERTAIN.
     Route: 048
  6. ACTEMRA [Suspect]
     Active Substance: TOCILIZUMAB
     Indication: SYSTEMIC LUPUS ERYTHEMATOSUS
     Route: 041
     Dates: start: 20120803, end: 20150403
  7. TAKEPRON [Concomitant]
     Active Substance: LANSOPRAZOLE
     Route: 065
  8. MUCOSTA [Concomitant]
     Active Substance: REBAMIPIDE
     Route: 065
  9. ATARAX-P [Concomitant]
     Active Substance: HYDROXYZINE HYDROCHLORIDE
     Route: 065
  10. SELENICA-R [Concomitant]
     Active Substance: VALPROATE SODIUM
     Dosage: DOSAGE IS UNCERTAIN.
     Route: 065
  11. PREDNISOLONE. [Suspect]
     Active Substance: PREDNISOLONE
     Indication: PRODUCT USED FOR UNKNOWN INDICATION
     Route: 065
  12. LASIX [Concomitant]
     Active Substance: FUROSEMIDE
     Route: 065

REACTIONS (6)
  - Gait disturbance [Recovering/Resolving]
  - White matter lesion [Unknown]
  - Off label use [Unknown]
  - Cognitive disorder [Unknown]
  - Irritability [Unknown]
  - Dyskinesia [Unknown]

NARRATIVE: CASE EVENT DATE: 201501
